FAERS Safety Report 18820374 (Version 1)
Quarter: 2021Q1

REPORT INFORMATION
  Report Type: Spontaneous
  Country: US (occurrence: US)
  Receive Date: 20210201
  Receipt Date: 20210201
  Transmission Date: 20210419
  Serious: Yes (Other)
  Sender: FDA-Public Use
  Company Number: None

PATIENT
  Age: 64 Year
  Sex: Male

DRUGS (66)
  1. DIPHENHYRAMINE [Concomitant]
     Active Substance: DIPHENHYDRAMINE
  2. ENOXAPARIN [Concomitant]
     Active Substance: ENOXAPARIN
  3. LORAZEPAM. [Concomitant]
     Active Substance: LORAZEPAM
  4. NICARDIPINE [Concomitant]
     Active Substance: NICARDIPINE
  5. KLOR?CON [Concomitant]
     Active Substance: POTASSIUM CHLORIDE
  6. ASPIRIN. [Concomitant]
     Active Substance: ASPIRIN
  7. BIO?K+ [Concomitant]
  8. LIDOCINE [Concomitant]
  9. MIDAOLAM [Concomitant]
  10. NITROGLYCERIN. [Concomitant]
     Active Substance: NITROGLYCERIN
  11. MIRALAX [Concomitant]
     Active Substance: POLYETHYLENE GLYCOL 3350
  12. KCI [Concomitant]
  13. PREGABALIN. [Concomitant]
     Active Substance: PREGABALIN
  14. PROPOFOL. [Concomitant]
     Active Substance: PROPOFOL
  15. OCEAN SALINE NASAL SPRAY [Concomitant]
     Active Substance: SODIUM CHLORIDE
  16. DOCUSATE [Concomitant]
     Active Substance: DOCUSATE
  17. HEPARIN [Concomitant]
     Active Substance: HEPARIN SODIUM
  18. OMNIPAQUE [Concomitant]
     Active Substance: IOHEXOL
  19. LACTULOSE. [Concomitant]
     Active Substance: LACTULOSE
  20. OXYCODONE [Concomitant]
     Active Substance: OXYCODONE
  21. KLOR?CON?M [Concomitant]
  22. ALBUMIN [Concomitant]
     Active Substance: ALBUMIN HUMAN
  23. DEXAMEDETOMIDINE [Concomitant]
  24. DILTIAZEM. [Concomitant]
     Active Substance: DILTIAZEM
  25. DOBUTAMINE [Concomitant]
     Active Substance: DOBUTAMINE HYDROCHLORIDE
  26. PEPCID [Concomitant]
     Active Substance: FAMOTIDINE
  27. GUAFENESIN [Concomitant]
     Active Substance: GUAIFENESIN
  28. MUPIROCIN OINT [Concomitant]
  29. NOREPINEPHRINE. [Concomitant]
     Active Substance: NOREPINEPHRINE
  30. VASOPRESSIN. [Concomitant]
     Active Substance: VASOPRESSIN
  31. ATORVASTATIN [Concomitant]
     Active Substance: ATORVASTATIN
  32. CALCIUM GLUCONATE. [Concomitant]
     Active Substance: CALCIUM GLUCONATE
  33. VISIPAQUE INTRACORONARY [Concomitant]
  34. MGSO4 [Concomitant]
     Active Substance: MAGNESIUM SULFATE
  35. MEROPENEM. [Concomitant]
     Active Substance: MEROPENEM
  36. CHLORASEPTIC SORE THROAT [Concomitant]
     Active Substance: PHENOL
  37. WARFARIN [Concomitant]
     Active Substance: WARFARIN
  38. CHLORHEXIDINE GLUCONATE ORAL RINSE, 0.12% [Suspect]
     Active Substance: CHLORHEXIDINE GLUCONATE
     Indication: PNEUMONIA
     Dosage: ?          OTHER ROUTE:SWISH AND SPIT?
     Dates: start: 20200814, end: 20200817
  39. CHLORHEXIDINE GLUCONATE ORAL RINSE, 0.12% [Suspect]
     Active Substance: CHLORHEXIDINE GLUCONATE
     Indication: PNEUMONIA
     Dosage: ?          OTHER ROUTE:SWISH AND SPIT?
     Dates: start: 20200822, end: 20200827
  40. APAP INJ [Concomitant]
  41. ACETAZOLAMIDE. [Concomitant]
     Active Substance: ACETAZOLAMIDE
  42. PROSOURCE OG/MG TIBE [Concomitant]
  43. BISACODYL SUPP [Concomitant]
  44. D5W INF [Concomitant]
  45. EFFER?K [Concomitant]
  46. QUETIAPINE. [Concomitant]
     Active Substance: QUETIAPINE
  47. ROSUVASATIN [Concomitant]
  48. EPINEPHRINE. [Concomitant]
     Active Substance: EPINEPHRINE
  49. FENTANYL. [Concomitant]
     Active Substance: FENTANYL
  50. LASIX [Concomitant]
     Active Substance: FUROSEMIDE
  51. DILAUDID [Concomitant]
     Active Substance: HYDROMORPHONE HYDROCHLORIDE
  52. INSULIN LISPRO [Concomitant]
     Active Substance: INSULIN LISPRO
  53. INSULIN RERGULAR HUMAN [Concomitant]
  54. MAGNESIUM OXIDE. [Concomitant]
     Active Substance: MAGNESIUM OXIDE
  55. SODIUM CHLORIDE 0.8% NEBULIZER [Concomitant]
  56. APAP  OG TUBE [Concomitant]
  57. AMIODARONE [Concomitant]
     Active Substance: AMIODARONE
  58. AMPICILLIN [Concomitant]
     Active Substance: AMPICILLIN
  59. CEFAZOLIN [Concomitant]
     Active Substance: CEFAZOLIN
  60. CEFTRIAXONE. [Concomitant]
     Active Substance: CEFTRIAXONE
  61. INTRADERMA [Concomitant]
  62. METOLAZONE. [Concomitant]
     Active Substance: METOLAZONE
  63. METOPROLOL. [Concomitant]
     Active Substance: METOPROLOL
  64. OLANZAPINE. [Concomitant]
     Active Substance: OLANZAPINE
  65. SENOKOT [Concomitant]
     Active Substance: SENNOSIDES
  66. SODIUM CHLORIDE. [Concomitant]
     Active Substance: SODIUM CHLORIDE

REACTIONS (9)
  - Respiratory failure [None]
  - Burkholderia test positive [None]
  - Mycobacterium test positive [None]
  - Weaning failure [None]
  - Atrial fibrillation [None]
  - Suspected transmission of an infectious agent via product [None]
  - Recalled product [None]
  - Atrioventricular block first degree [None]
  - Delirium [None]

NARRATIVE: CASE EVENT DATE: 20200825
